FAERS Safety Report 4287090-4 (Version None)
Quarter: 2004Q1

REPORT INFORMATION
  Report Type: 
  Country: None (occurrence: None)
  Receive Date: 20040128
  Receipt Date: 20031022
  Transmission Date: 20041129
  Serious: Yes (Life-Threatening, Hospitalization, Disabling)
  Sender: FDA-Public Use
  Company Number: 0310-274

PATIENT
  Age: 1 Day
  Sex: Female
  Weight: 1.04 kg

DRUGS (4)
  1. CUROSURF [Suspect]
     Indication: NEONATAL RESPIRATORY DISTRESS SYNDROME
     Dosage: 120 MG, INTRATRACHEAL
     Route: 039
     Dates: start: 20031002, end: 30031003
  2. DOPAMINE, [Concomitant]
  3. DOBUTAMINE HCL [Concomitant]
  4. MORPHINE [Concomitant]

REACTIONS (1)
  - PULMONARY HAEMORRHAGE [None]
